FAERS Safety Report 6682636-0 (Version None)
Quarter: 2010Q2

REPORT INFORMATION
  Report Type: 
  Country: None (occurrence: None)
  Receive Date: 20100415
  Receipt Date: 20100409
  Transmission Date: 20101027
  Serious: Yes (Death, Hospitalization)
  Sender: FDA-Public Use
  Company Number: PHHY2010CR22533

PATIENT
  Age: 53 Year
  Sex: Male

DRUGS (1)
  1. VOLTAREN [Suspect]
     Dosage: 75 MG
     Route: 030

REACTIONS (6)
  - DEATH [None]
  - FASCIOTOMY [None]
  - HYPOTENSION [None]
  - NECROTISING FASCIITIS [None]
  - RECTAL PERFORATION [None]
  - SUBCUTANEOUS ABSCESS [None]
